FAERS Safety Report 10932619 (Version 1)
Quarter: 2015Q1

REPORT INFORMATION
  Report Type: Spontaneous
  Country: None (occurrence: None)
  Receive Date: 20150319
  Receipt Date: 20150319
  Transmission Date: 20150721
  Serious: Yes (Disabling)
  Sender: FDA-Public Use
  Company Number: None

PATIENT
  Age: 34 Year
  Sex: Female

DRUGS (6)
  1. NEXPLANON [Suspect]
     Active Substance: ETONOGESTREL
  2. SALBUTAMOL [Concomitant]
     Active Substance: ALBUTEROL
  3. FOLIC ACID. [Concomitant]
     Active Substance: FOLIC ACID
  4. LEVOTHYROXINE [Concomitant]
     Active Substance: LEVOTHYROXINE
  5. QVAR [Concomitant]
     Active Substance: BECLOMETHASONE DIPROPIONATE
  6. FLUOXETINE [Concomitant]
     Active Substance: FLUOXETINE\FLUOXETINE HYDROCHLORIDE

REACTIONS (5)
  - Abdominal distension [None]
  - Nausea [None]
  - Nipple pain [None]
  - Constipation [None]
  - Flatulence [None]
